FAERS Safety Report 4755373-7 (Version None)
Quarter: 2005Q3

REPORT INFORMATION
  Report Type: 
  Country: None (occurrence: None)
  Receive Date: 20050826
  Receipt Date: 20041015
  Transmission Date: 20060218
  Serious: Yes (Other)
  Sender: FDA-Public Use
  Company Number: USA-2002-0000679

PATIENT
  Age: 39 Year
  Sex: Female

DRUGS (33)
  1. OXYCONTIN [Suspect]
     Indication: PAIN
     Dosage: SEE TEXT, ORAL
     Route: 048
     Dates: start: 20000818
  2. ROXICET [Concomitant]
  3. ACETAMINOPHEN AND HYDROCODONE BITARTRATE [Concomitant]
  4. ACETAMINOPHEN AND OXYCODONE HCL [Concomitant]
  5. ALPRAZOLAM [Concomitant]
  6. LORAZEPAM [Concomitant]
  7. AUGMENTIN '125' [Concomitant]
  8. BIAXIN [Concomitant]
  9. CEFTIN [Concomitant]
  10. ERY-TAB [Concomitant]
  11. CLARITIN-D [Concomitant]
  12. ALLEGRA [Concomitant]
  13. NEURONTIN [Concomitant]
  14. PREDNISONE [Concomitant]
  15. PROTONIX [Concomitant]
  16. PREVACID [Concomitant]
  17. CELEXA [Concomitant]
  18. DARVOCET-N 100 [Concomitant]
  19. REMERON [Concomitant]
  20. BACLOFEN [Concomitant]
  21. VALIUM [Concomitant]
  22. MARIJUANA [Concomitant]
  23. COCAINE [Concomitant]
  24. VIOXX [Concomitant]
  25. ALBUTEROL [Concomitant]
  26. ROCEPHIN [Concomitant]
  27. ACYCLOVIR [Concomitant]
  28. RELAFEN [Concomitant]
  29. ZITHROMAX [Concomitant]
  30. PAXIL [Concomitant]
  31. SKELAXIN [Concomitant]
  32. ULTRAM [Concomitant]
  33. PHENERGAN ^NATRAPHARM^ [Concomitant]

REACTIONS (28)
  - ABDOMINAL PAIN [None]
  - BILIARY DYSKINESIA [None]
  - BREAST PAIN [None]
  - BRONCHITIS [None]
  - CARPAL TUNNEL SYNDROME [None]
  - CHEST DISCOMFORT [None]
  - CHOLECYSTITIS [None]
  - DRUG ABUSER [None]
  - DRUG DEPENDENCE [None]
  - DRUG WITHDRAWAL SYNDROME [None]
  - DYSPNOEA [None]
  - DYSURIA [None]
  - FALL [None]
  - FATIGUE [None]
  - GASTRITIS [None]
  - HEADACHE [None]
  - HERPES SIMPLEX [None]
  - INADEQUATE ANALGESIA [None]
  - MALAISE [None]
  - PAIN [None]
  - PALPITATIONS [None]
  - PLEURISY [None]
  - POLLAKIURIA [None]
  - ROAD TRAFFIC ACCIDENT [None]
  - SCIATICA [None]
  - SINUSITIS [None]
  - URINARY TRACT INFECTION [None]
  - VAGINAL INFECTION [None]
